FAERS Safety Report 4471329-6 (Version None)
Quarter: 2004Q4

REPORT INFORMATION
  Report Type: 
  Country: None (occurrence: None)
  Receive Date: 20041006
  Receipt Date: 20040924
  Transmission Date: 20050328
  Serious: Yes (Other)
  Sender: FDA-Public Use
  Company Number: M2004-1406

PATIENT
  Age: 66 Year
  Sex: Male

DRUGS (12)
  1. DICLOFENAC [Suspect]
  2. RIMACTANE [Suspect]
     Indication: STAPHYLOCOCCAL INFECTION
     Dosage: 600 MG/DAY
     Dates: start: 20040210, end: 20040303
  3. ALFUZOSIN HCL [Concomitant]
  4. BISOPROLOL FUMARATE [Concomitant]
  5. HEPARIN-FRACTION SODIUM SALT [Concomitant]
  6. . [Concomitant]
  7. .. [Concomitant]
  8. 3-DIPHENYL-1-METHYLALLYLAMINE HCL [Concomitant]
  9. PARACETAMOL [Concomitant]
  10. CEFUROXIME [Concomitant]
  11. ROPIVACAINE HCL [Concomitant]
  12. ZOPICLONE [Concomitant]

REACTIONS (9)
  - BLOOD CREATININE INCREASED [None]
  - DRUG INEFFECTIVE [None]
  - HAEMOPTYSIS [None]
  - INTERSTITIAL LUNG DISEASE [None]
  - LIVER DISORDER [None]
  - NEPHRITIS INTERSTITIAL [None]
  - PYREXIA [None]
  - RESPIRATORY FAILURE [None]
  - THROMBOSIS [None]
